FAERS Safety Report 7288253-6 (Version None)
Quarter: 2011Q1

REPORT INFORMATION
  Report Type: 
  Country: None (occurrence: None)
  Receive Date: 20110211
  Receipt Date: 20110201
  Transmission Date: 20110831
  Serious: Yes (Other)
  Sender: FDA-Public Use
  Company Number: ES-JNJFOC-20091003749

PATIENT
  Sex: Female
  Weight: 55 kg

DRUGS (5)
  1. REMICADE [Suspect]
     Indication: CROHN'S DISEASE
     Route: 042
     Dates: start: 20090128, end: 20090329
  2. REMICADE [Suspect]
     Route: 042
     Dates: start: 20090128, end: 20090329
  3. PENTASA [Concomitant]
     Indication: CROHN'S DISEASE
  4. REMICADE [Suspect]
     Route: 042
     Dates: start: 20090128, end: 20090329
  5. IMURAN [Concomitant]
     Indication: CROHN'S DISEASE

REACTIONS (1)
  - CERVICAL DYSPLASIA [None]
